FAERS Safety Report 6247740-X (Version None)
Quarter: 2009Q2

REPORT INFORMATION
  Report Type: 
  Country: None (occurrence: None)
  Receive Date: 20090626
  Receipt Date: 20090622
  Transmission Date: 20091009
  Serious: Yes (Other)
  Sender: FDA-Public Use
  Company Number: PHHY2009BE24176

PATIENT

DRUGS (3)
  1. ZOMETA [Suspect]
     Dosage: 4 MG EVERY MONTH
     Route: 065
     Dates: start: 20080701
  2. ZOMETA [Suspect]
     Dosage: 4 MG EVERY 6 WEEKS
     Route: 065
  3. SUTENT [Concomitant]
     Route: 065

REACTIONS (2)
  - OSTEONECROSIS [None]
  - TOOTH EXTRACTION [None]
